FAERS Safety Report 24173509 (Version 1)
Quarter: 2024Q3

REPORT INFORMATION
  Report Type: Spontaneous
  Country: US (occurrence: US)
  Receive Date: 20240805
  Receipt Date: 20240805
  Transmission Date: 20241016
  Serious: No
  Sender: GLAXOSMITHKLINE
  Company Number: US-GSKCCFUS-Case-02066397_AE-114331

PATIENT
  Sex: Female

DRUGS (1)
  1. NUCALA [Suspect]
     Active Substance: MEPOLIZUMAB
     Indication: Nasal polyps
     Dosage: 100 MG
     Route: 058

REACTIONS (4)
  - Cheilitis [Not Recovered/Not Resolved]
  - Tongue eruption [Not Recovered/Not Resolved]
  - Oral discomfort [Unknown]
  - Oral hyperaesthesia [Unknown]
